FAERS Safety Report 20247934 (Version 1)
Quarter: 2021Q4

REPORT INFORMATION
  Report Type: Spontaneous
  Country: US (occurrence: None)
  Receive Date: 20211228
  Receipt Date: 20211228
  Transmission Date: 20220303
  Serious: Yes (Hospitalization)
  Sender: FDA-Public Use
  Company Number: None

PATIENT
  Age: 70 Year
  Sex: Male
  Weight: 92 kg

DRUGS (1)
  1. DAPTOMYCIN [Suspect]
     Active Substance: DAPTOMYCIN
     Dates: start: 20210806, end: 20210903

REACTIONS (4)
  - Cough [None]
  - Wheezing [None]
  - Pyrexia [None]
  - Eosinophil count increased [None]

NARRATIVE: CASE EVENT DATE: 20210902
